APPROVED DRUG PRODUCT: DAUNORUBICIN HYDROCHLORIDE
Active Ingredient: DAUNORUBICIN HYDROCHLORIDE
Strength: EQ 20MG BASE/VIAL
Dosage Form/Route: INJECTABLE;INJECTION
Application: A206195 | Product #001
Applicant: HISUN PHARMACEUTICAL HANGZHOU CO LTD
Approved: Apr 25, 2019 | RLD: No | RS: No | Type: DISCN